FAERS Safety Report 6406158-7 (Version None)
Quarter: 2009Q4

REPORT INFORMATION
  Report Type: 
  Country: None (occurrence: None)
  Receive Date: 20091019
  Receipt Date: 20081024
  Transmission Date: 20100525
  Serious: Yes (Death)
  Sender: FDA-Public Use
  Company Number: US-AVENTIS-200817236US

PATIENT
  Sex: Male

DRUGS (1)
  1. ANZEMET [Suspect]
     Dosage: DOSE: UNK

REACTIONS (1)
  - ONCOLOGIC COMPLICATION [None]
